FAERS Safety Report 19936961 (Version 1)
Quarter: 2021Q4

REPORT INFORMATION
  Report Type: Other
  Country: IT (occurrence: IT)
  Receive Date: 20211009
  Receipt Date: 20211009
  Transmission Date: 20220304
  Serious: Yes (Other)
  Sender: FDA-Public Use
  Company Number: IT-CELLTRION HEALTHCARE HUNGARY KFT-2021IT003395

PATIENT

DRUGS (9)
  1. MABTHERA [Suspect]
     Active Substance: RITUXIMAB
     Indication: Product used for unknown indication
     Dosage: 2ND LINE TREATMENT: R-DHAP
     Route: 065
  2. MABTHERA [Suspect]
     Active Substance: RITUXIMAB
     Dosage: 1ST LINE TREATMENT: R-CEOP
     Route: 065
  3. RITUXIMAB [Suspect]
     Active Substance: RITUXIMAB
     Indication: Diffuse large B-cell lymphoma stage IV
     Dosage: 2ND LINE TREATMENT: R-DHAP
     Route: 065
  4. CISPLATIN\CYTARABINE\DEXAMETHASONE [Suspect]
     Active Substance: CISPLATIN\CYTARABINE\DEXAMETHASONE
     Indication: Diffuse large B-cell lymphoma stage IV
     Dosage: 2ND LINE TREATMENT: R-DHAP
     Route: 065
  5. SOFOSBUVIR\VELPATASVIR [Suspect]
     Active Substance: SOFOSBUVIR\VELPATASVIR
     Indication: Hepatitis C
     Route: 065
  6. CYCLOPHOSPHAMIDE [Suspect]
     Active Substance: CYCLOPHOSPHAMIDE
     Indication: Diffuse large B-cell lymphoma stage IV
     Dosage: 1ST LINE TREATMENT: R-CEOP
     Route: 065
  7. PREDNISONE [Suspect]
     Active Substance: PREDNISONE
  8. VINCRISTINE [Suspect]
     Active Substance: VINCRISTINE
  9. EPIRUBICIN [Suspect]
     Active Substance: EPIRUBICIN

REACTIONS (1)
  - Diffuse large B-cell lymphoma recurrent [Unknown]
